FAERS Safety Report 4281920-8 (Version None)
Quarter: 2004Q1

REPORT INFORMATION
  Report Type: 
  Country: None (occurrence: None)
  Receive Date: 20040128
  Receipt Date: 20040122
  Transmission Date: 20041129
  Serious: Yes (Hospitalization)
  Sender: FDA-Public Use
  Company Number: TPA2004A00076

PATIENT
  Age: 50 Year
  Sex: Male
  Weight: 117.9352 kg

DRUGS (8)
  1. ACTOS [Suspect]
     Indication: DIABETES MELLITUS NON-INSULIN-DEPENDENT
     Dosage: SEE IMAGE
     Route: 048
     Dates: start: 19990122, end: 20030701
  2. ACTOS [Suspect]
     Indication: DIABETES MELLITUS NON-INSULIN-DEPENDENT
     Dosage: SEE IMAGE
     Route: 048
     Dates: start: 20030701
  3. HYDROCHLOROTHIAZIDE [Concomitant]
  4. HUMULIN R (INSULIN HUMAN ) (17 IU (INTERNATIONAL UNIT), INJECTION) [Concomitant]
  5. HUMULIN NPH (INSULIN HUMAN INJECTION, ISOPHANE) (INJECTION) [Concomitant]
  6. MEVACOR [Concomitant]
  7. COZAAR [Concomitant]
  8. NITROGLYCERIN (GLYCERYL TRINITRATE) (PILL) [Concomitant]

REACTIONS (11)
  - ASTHENIA [None]
  - BLOOD GLUCOSE INCREASED [None]
  - CARPAL TUNNEL SYNDROME [None]
  - HEMIPARESIS [None]
  - JOINT INJURY [None]
  - JOINT SWELLING [None]
  - LIMB INJURY [None]
  - MUSCLE INJURY [None]
  - MYOCARDIAL INFARCTION [None]
  - OEDEMA PERIPHERAL [None]
  - TENDONITIS [None]
